FAERS Safety Report 6842967-8 (Version None)
Quarter: 2010Q3

REPORT INFORMATION
  Report Type: 
  Country: None (occurrence: None)
  Receive Date: 20100714
  Receipt Date: 20070910
  Transmission Date: 20110219
  Serious: No
  Sender: FDA-Public Use
  Company Number: US-PFIZER INC-2007067051

PATIENT
  Sex: Male
  Weight: 62.7 kg

DRUGS (5)
  1. CHANTIX [Suspect]
     Indication: SMOKING CESSATION THERAPY
     Dates: start: 20070701, end: 20070807
  2. METOPROLOL [Concomitant]
  3. SPIRIVA [Concomitant]
  4. LOTREL [Concomitant]
  5. QUINAPRIL [Concomitant]

REACTIONS (4)
  - DRUG INEFFECTIVE [None]
  - MALAISE [None]
  - NAUSEA [None]
  - WEIGHT DECREASED [None]
